FAERS Safety Report 4945079-3 (Version None)
Quarter: 2006Q1

REPORT INFORMATION
  Report Type: 
  Country: None (occurrence: None)
  Receive Date: 20060316
  Receipt Date: 20060306
  Transmission Date: 20060701
  Serious: Yes (Hospitalization)
  Sender: FDA-Public Use
  Company Number: US-JNJFOC-20060101091

PATIENT
  Sex: Female
  Weight: 77.11 kg

DRUGS (1)
  1. REMICADE [Suspect]
     Indication: RHEUMATOID ARTHRITIS
     Route: 042

REACTIONS (4)
  - FISTULA [None]
  - INFECTION [None]
  - OXYGEN SUPPLEMENTATION [None]
  - PERFORATED ULCER [None]
